FAERS Safety Report 11225912 (Version 1)
Quarter: 2015Q2

REPORT INFORMATION
  Report Type: Spontaneous
  Country: US (occurrence: US)
  Receive Date: 20150629
  Receipt Date: 20150629
  Transmission Date: 20150821
  Serious: No
  Sender: FDA-Public Use
  Company Number: US-ASTRAZENECA-2015SE60895

PATIENT
  Age: 59 Year
  Sex: Female
  Weight: 83.9 kg

DRUGS (4)
  1. UNK HYPERTENSIVE DRUG [Concomitant]
     Indication: HYPERTENSION
     Route: 048
  2. BYDUREON [Suspect]
     Active Substance: EXENATIDE
     Indication: TYPE 2 DIABETES MELLITUS
     Route: 058
     Dates: start: 201505
  3. METFORMIN [Concomitant]
     Active Substance: METFORMIN HYDROCHLORIDE
     Route: 048
     Dates: end: 201505
  4. UNK CHOLESTEROL DRUG [Concomitant]
     Indication: BLOOD CHOLESTEROL INCREASED
     Route: 048

REACTIONS (2)
  - Diabetes mellitus inadequate control [Unknown]
  - Injection site mass [Not Recovered/Not Resolved]

NARRATIVE: CASE EVENT DATE: 201505
